FAERS Safety Report 15241585 (Version 1)
Quarter: 2018Q3

REPORT INFORMATION
  Report Type: Spontaneous
  Country: US (occurrence: US)
  Receive Date: 20180805
  Receipt Date: 20180805
  Transmission Date: 20181010
  Serious: Yes (Other)
  Sender: FDA-Public Use
  Company Number: PHEH2018US030950

PATIENT
  Sex: Female

DRUGS (1)
  1. KETOCONAZOLE. [Suspect]
     Active Substance: KETOCONAZOLE
     Indication: PRODUCT USED FOR UNKNOWN INDICATION
     Dosage: 1 OR 2 PER DAY
     Route: 065
     Dates: start: 20180717, end: 20180718

REACTIONS (5)
  - Application site vesicles [Unknown]
  - Application site erythema [Unknown]
  - Application site swelling [Unknown]
  - Condition aggravated [Unknown]
  - Application site pruritus [Unknown]
